FAERS Safety Report 18551992 (Version 1)
Quarter: 2020Q4

REPORT INFORMATION
  Report Type: Spontaneous
  Country: US (occurrence: US)
  Receive Date: 20201127
  Receipt Date: 20201127
  Transmission Date: 20210114
  Serious: No
  Sender: FDA-Public Use
  Company Number: US-AUROBINDO-AUR-APL-2020-003759

PATIENT
  Age: 68 Year
  Sex: Female

DRUGS (2)
  1. GABAPENTIN TABLETS [Suspect]
     Active Substance: GABAPENTIN
     Dosage: 600 MILLIGRAM, 3 TIMES A DAY (1800 A DAY)
     Route: 065
  2. GABAPENTIN TABLETS [Suspect]
     Active Substance: GABAPENTIN
     Indication: NEURALGIA
     Dosage: 2100 MILLIGRAM, DAILY
     Route: 065

REACTIONS (8)
  - Dizziness [Unknown]
  - Confusional state [Unknown]
  - Nervousness [Unknown]
  - Dysstasia [Unknown]
  - Feeling abnormal [Unknown]
  - Back pain [Unknown]
  - Intentional product use issue [Unknown]
  - Mood altered [Unknown]
